FAERS Safety Report 8297984-0 (Version None)
Quarter: 2012Q2

REPORT INFORMATION
  Report Type: 
  Country: None (occurrence: None)
  Receive Date: 20120419
  Receipt Date: 20120410
  Transmission Date: 20120825
  Serious: Yes (Other)
  Sender: FDA-Public Use
  Company Number: BE-ASTRAZENECA-2012SE15900

PATIENT
  Age: 80 Year
  Sex: Male

DRUGS (4)
  1. MEDICATION FOR DIABETES [Concomitant]
  2. CRESTOR [Suspect]
     Route: 048
     Dates: start: 20111112
  3. CRESTOR [Suspect]
     Route: 048
     Dates: end: 20120306
  4. GLUCOPHAGE [Concomitant]
     Route: 048

REACTIONS (2)
  - POLYMYALGIA RHEUMATICA [None]
  - SLEEP DISORDER DUE TO GENERAL MEDICAL CONDITION, INSOMNIA TYPE [None]
